FAERS Safety Report 7473860-8 (Version None)
Quarter: 2011Q2

REPORT INFORMATION
  Report Type: 
  Country: None (occurrence: None)
  Receive Date: 20110511
  Receipt Date: 20110503
  Transmission Date: 20111010
  Serious: Yes (Hospitalization)
  Sender: FDA-Public Use
  Company Number: US-BAXTER-2011BH014288

PATIENT
  Age: 84 Year
  Sex: Male

DRUGS (5)
  1. HIGH BLOOD PRESSURE PILL [Concomitant]
     Indication: HYPERTENSION
     Route: 048
  2. DIANEAL [Suspect]
     Indication: RENAL FAILURE CHRONIC
     Route: 033
     Dates: start: 20110112
  3. TRAMADOL HYDROCHLORIDE [Concomitant]
     Indication: BACK PAIN
     Route: 048
     Dates: start: 20100101
  4. HIGH CHOLESTEROL PILL [Concomitant]
     Indication: BLOOD CHOLESTEROL
     Route: 048
  5. DIANEAL [Suspect]
     Indication: PERITONEAL DIALYSIS
     Route: 033
     Dates: start: 20110112

REACTIONS (4)
  - HYPOTENSION [None]
  - DIZZINESS [None]
  - PROCEDURAL PAIN [None]
  - DEHYDRATION [None]
